FAERS Safety Report 10273165 (Version 1)
Quarter: 2014Q2

REPORT INFORMATION
  Report Type: Spontaneous
  Country: US (occurrence: None)
  Receive Date: 20140630
  Receipt Date: 20140630
  Transmission Date: 20141212
  Serious: No
  Sender: FDA-Public Use
  Company Number: None

PATIENT
  Age: 12 Year
  Sex: Female

DRUGS (1)
  1. GENERIC CONCERTA [Suspect]
     Dosage: 54MG  ONE AM  BY MOUTH?DATES OF USE:  6-16-14 - 6-12-14
     Route: 048

REACTIONS (2)
  - Product substitution issue [None]
  - Drug effect incomplete [None]
